FAERS Safety Report 7196932-4 (Version None)
Quarter: 2010Q4

REPORT INFORMATION
  Report Type: 
  Country: None (occurrence: None)
  Receive Date: 20101224
  Receipt Date: 20101214
  Transmission Date: 20110411
  Serious: Yes (Hospitalization, Other)
  Sender: FDA-Public Use
  Company Number: GB-BIOGENIDEC-2010BI041072

PATIENT
  Age: 35 Year
  Sex: Female

DRUGS (4)
  1. TYSABRI [Suspect]
     Indication: MULTIPLE SCLEROSIS
  2. METHYLPREDNISOLONE [Concomitant]
     Route: 042
  3. METHYLPREDNISOLONE [Concomitant]
     Route: 042
  4. METHYLPREDNISOLONE [Concomitant]
     Route: 042

REACTIONS (2)
  - MULTIPLE SCLEROSIS RELAPSE [None]
  - NEUROMYELITIS OPTICA [None]
